FAERS Safety Report 21683124 (Version 1)
Quarter: 2022Q4

REPORT INFORMATION
  Report Type: Spontaneous
  Country: US (occurrence: None)
  Receive Date: 20221204
  Receipt Date: 20221204
  Transmission Date: 20230113
  Serious: Yes (Disabling, Other)
  Sender: FDA-Public Use
  Company Number: None

PATIENT
  Age: 44 Year
  Sex: Female
  Weight: 101.25 kg

DRUGS (7)
  1. BOTOX [Suspect]
     Active Substance: ONABOTULINUMTOXINA
     Indication: Bruxism
     Dosage: OTHER QUANTITY : 60 UNIT;?OTHER FREQUENCY : ONCE EVERY 4 MONTH;?
     Route: 030
     Dates: start: 20221024
  2. LAMICTAL [Concomitant]
     Active Substance: LAMOTRIGINE
  3. TOPAMAX [Concomitant]
     Active Substance: TOPIRAMATE
  4. PROTONIX [Concomitant]
     Active Substance: PANTOPRAZOLE SODIUM
  5. Sea buckthorn berry [Concomitant]
  6. FENUGREEK SEED [Concomitant]
     Active Substance: FENUGREEK SEED
  7. SLIPPERY ELM BARK [Concomitant]

REACTIONS (3)
  - Headache [None]
  - Muscular weakness [None]
  - Wrong technique in product usage process [None]

NARRATIVE: CASE EVENT DATE: 20221024
